FAERS Safety Report 16918896 (Version 1)
Quarter: 2019Q4

REPORT INFORMATION
  Report Type: Spontaneous
  Country: US (occurrence: US)
  Receive Date: 20191015
  Receipt Date: 20191015
  Transmission Date: 20200122
  Serious: No
  Sender: FDA-Public Use
  Company Number: US-C B FLEET CO INC-201905-US-001425

PATIENT
  Age: 2 Year
  Sex: Male

DRUGS (1)
  1. MONISTAT 7 WITH REUSABLE APPLICATOR [Suspect]
     Active Substance: MICONAZOLE NITRATE
     Indication: MATERNAL EXPOSURE DURING BREAST FEEDING
     Dosage: USED 3RD DAY THEN STOPPED USE
     Route: 067

REACTIONS (1)
  - Maternal exposure during breast feeding [Unknown]
